FAERS Safety Report 15794450 (Version 4)
Quarter: 2019Q4

REPORT INFORMATION
  Report Type: Spontaneous
  Country: FR (occurrence: FR)
  Receive Date: 20190107
  Receipt Date: 20191202
  Transmission Date: 20200122
  Serious: Yes (Death, Hospitalization)
  Sender: FDA-Public Use
  Company Number: FR-PFIZER INC-2019005983

PATIENT
  Age: 74 Year
  Sex: Female

DRUGS (1)
  1. CELECOXIB. [Suspect]
     Active Substance: CELECOXIB
     Indication: BACK PAIN
     Dosage: 200 MG, SINGLE
     Dates: start: 20170406, end: 20170406

REACTIONS (2)
  - Vanishing bile duct syndrome [Fatal]
  - Hepatitis cholestatic [Fatal]

NARRATIVE: CASE EVENT DATE: 20170406
